FAERS Safety Report 23459564 (Version 3)
Quarter: 2024Q1

REPORT INFORMATION
  Report Type: Spontaneous
  Country: US (occurrence: US)
  Receive Date: 20240131
  Receipt Date: 20240315
  Transmission Date: 20240409
  Serious: No
  Sender: FDA-Public Use
  Company Number: US-BRISTOL-MYERS SQUIBB COMPANY-2024-014417

PATIENT
  Age: 72 Year
  Sex: Female
  Weight: 94.8 kg

DRUGS (2)
  1. REVLIMID [Suspect]
     Active Substance: LENALIDOMIDE
     Indication: Plasma cell myeloma
     Route: 048
     Dates: start: 20230127
  2. REVLIMID [Suspect]
     Active Substance: LENALIDOMIDE

REACTIONS (5)
  - Diarrhoea [Recovering/Resolving]
  - Off label use [Unknown]
  - Dehydration [Not Recovered/Not Resolved]
  - Weight decreased [Recovering/Resolving]
  - Gastrointestinal disorder [Not Recovered/Not Resolved]
